FAERS Safety Report 24706646 (Version 2)
Quarter: 2024Q4

REPORT INFORMATION
  Report Type: Spontaneous
  Country: HR (occurrence: HR)
  Receive Date: 20241206
  Receipt Date: 20241226
  Transmission Date: 20250114
  Serious: Yes (Hospitalization, Other)
  Sender: VERTEX
  Company Number: HR-VERTEX PHARMACEUTICALS-2024-018723

PATIENT
  Age: 24 Year
  Sex: Female
  Weight: 67 kg

DRUGS (4)
  1. ELEXACAFTOR\IVACAFTOR\TEZACAFTOR [Suspect]
     Active Substance: ELEXACAFTOR\IVACAFTOR\TEZACAFTOR
     Indication: Cystic fibrosis
     Dosage: 2 PILLS
     Route: 048
     Dates: start: 20210414
  2. KALYDECO [Suspect]
     Active Substance: IVACAFTOR
     Indication: Cystic fibrosis
     Dosage: ONE PILL
     Route: 048
     Dates: start: 20210414
  3. PULMOZYME [Concomitant]
     Active Substance: DORNASE ALFA
     Dosage: 1X1
  4. FOLIC ACID [Concomitant]
     Active Substance: FOLIC ACID
     Dosage: 1X1

REACTIONS (4)
  - Stillbirth [Unknown]
  - Premature separation of placenta [Unknown]
  - Exposure during pregnancy [Unknown]
  - Aspartate aminotransferase increased [Unknown]

NARRATIVE: CASE EVENT DATE: 20241126
